FAERS Safety Report 22141302 (Version 1)
Quarter: 2023Q1

REPORT INFORMATION
  Report Type: Spontaneous
  Country: UY (occurrence: UY)
  Receive Date: 20230327
  Receipt Date: 20230327
  Transmission Date: 20230418
  Serious: No
  Sender: FDA-Public Use
  Company Number: UY-PFIZER INC-PV202300049107

PATIENT
  Age: 2 Year
  Sex: Male

DRUGS (1)
  1. GENOTROPIN [Suspect]
     Active Substance: SOMATROPIN
     Indication: Growth hormone deficiency
     Dosage: 0.1 MG TO 0.5 MG, 7 TIMES PER WEEK
     Dates: start: 20220321

REACTIONS (4)
  - Wrong technique in device usage process [Unknown]
  - Liquid product physical issue [Unknown]
  - Poor quality device used [Unknown]
  - Device occlusion [Unknown]

NARRATIVE: CASE EVENT DATE: 20230101
